FAERS Safety Report 8847667 (Version 6)
Quarter: 2016Q3

REPORT INFORMATION
  Report Type: Spontaneous
  Country: US (occurrence: US)
  Receive Date: 20121018
  Receipt Date: 20160805
  Transmission Date: 20161109
  Serious: Yes (Hospitalization, Other)
  Sender: FDA-Public Use
  Company Number: US-009507513-1210USA004199

PATIENT
  Sex: Female
  Weight: 82.86 kg

DRUGS (5)
  1. FOSAMAX [Suspect]
     Active Substance: ALENDRONATE SODIUM
     Indication: OSTEOPENIA
     Dosage: 70 MG, QW
     Route: 048
     Dates: start: 2008, end: 201007
  2. ALENDRONATE SODIUM. [Suspect]
     Active Substance: ALENDRONATE SODIUM
     Indication: OSTEOPENIA
     Dosage: 70 MG, QW
     Route: 048
     Dates: start: 200806, end: 200809
  3. FOSAMAX [Suspect]
     Active Substance: ALENDRONATE SODIUM
     Dosage: 35 MG, QW
     Route: 048
     Dates: start: 200503, end: 200806
  4. FOSAMAX [Suspect]
     Active Substance: ALENDRONATE SODIUM
     Dosage: 70 MG, QW
     Route: 048
     Dates: start: 20101213, end: 20110630
  5. FOSAMAX [Suspect]
     Active Substance: ALENDRONATE SODIUM
     Indication: PROPHYLAXIS
     Dosage: 70 MG, QW
     Route: 048
     Dates: start: 1995, end: 2008

REACTIONS (23)
  - Hypertension [Not Recovered/Not Resolved]
  - Hyperlipidaemia [Not Recovered/Not Resolved]
  - Heart rate increased [Not Recovered/Not Resolved]
  - Intramedullary rod insertion [Unknown]
  - Cholecystectomy [Unknown]
  - Non-cardiac chest pain [Unknown]
  - Foot fracture [Unknown]
  - Arthralgia [Unknown]
  - Arthroscopy [Unknown]
  - Osteoporosis [Recovering/Resolving]
  - Pain in extremity [Unknown]
  - Fall [Unknown]
  - Open reduction of fracture [Unknown]
  - Anaemia postoperative [Unknown]
  - Dental implantation [Unknown]
  - Endodontic procedure [Unknown]
  - Foot fracture [Unknown]
  - Cataract operation [Unknown]
  - Orthostatic hypotension [Unknown]
  - Hot flush [Not Recovered/Not Resolved]
  - Intramedullary rod insertion [Unknown]
  - Femur fracture [Unknown]
  - Fracture delayed union [Unknown]

NARRATIVE: CASE EVENT DATE: 1995
